FAERS Safety Report 5279115-4 (Version None)
Quarter: 2007Q1

REPORT INFORMATION
  Report Type: 
  Country: None (occurrence: None)
  Receive Date: 20070327
  Receipt Date: 20070327
  Transmission Date: 20070707
  Serious: Yes (Hospitalization)
  Sender: FDA-Public Use
  Company Number: None

PATIENT
  Age: 76 Year
  Sex: Male
  Weight: 75.7507 kg

DRUGS (8)
  1. WARFARIN SODIUM [Suspect]
     Dosage: 5 MG DAILY PO
     Route: 048
     Dates: start: 20070312, end: 20070315
  2. LOVENOX [Suspect]
     Dosage: 80 MG BID SQ
     Route: 058
  3. GABAPENTIN [Concomitant]
  4. LISINOPRIL [Concomitant]
  5. METOPROLOL SUCCINATE [Concomitant]
  6. OMEPRAZOLE [Concomitant]
  7. OXYCODONE HCL [Concomitant]
  8. SIMVASTATIN [Concomitant]

REACTIONS (2)
  - GASTROINTESTINAL HAEMORRHAGE [None]
  - GINGIVAL BLEEDING [None]
